FAERS Safety Report 11617838 (Version 1)
Quarter: 2015Q4

REPORT INFORMATION
  Report Type: Report from Study
  Country: US (occurrence: US)
  Receive Date: 20151009
  Receipt Date: 20151009
  Transmission Date: 20160304
  Serious: No
  Sender: FDA-Public Use
  Company Number: PHHY2013US153593

PATIENT
  Age: 14 Year
  Sex: Male

DRUGS (16)
  1. XOLAIR [Suspect]
     Active Substance: OMALIZUMAB
     Dosage: 300 MG (150MG RIGHT SIDE AND 150 MG LEFT SIDE)
     Route: 058
     Dates: start: 20110916
  2. ZITHROMAX [Concomitant]
     Active Substance: AZITHROMYCIN DIHYDRATE
     Indication: PRODUCT USED FOR UNKNOWN INDICATION
     Dosage: 2 DF, 250 MG  (2 PILLS FOR DAY 1, TAKE WITH FOOD)
     Route: 065
  3. ROCEPHIN [Suspect]
     Active Substance: CEFTRIAXONE SODIUM
     Indication: ASTHMA
     Dosage: 1 G
     Route: 065
  4. XOLAIR [Suspect]
     Active Substance: OMALIZUMAB
     Dosage: 300 MG (150MG RIGHT SIDE AND 150 MG LEFT SIDE)
     Route: 058
     Dates: start: 20110901
  5. PREDNISONE. [Concomitant]
     Active Substance: PREDNISONE
     Indication: PRODUCT USED FOR UNKNOWN INDICATION
     Dosage: 20 MG
     Route: 048
  6. SYMBICORT [Concomitant]
     Active Substance: BUDESONIDE\FORMOTEROL FUMARATE DIHYDRATE
     Indication: PRODUCT USED FOR UNKNOWN INDICATION
     Route: 065
  7. XOLAIR [Suspect]
     Active Substance: OMALIZUMAB
     Indication: ASTHMA
     Dosage: 300 MG (150MG RIGHT SIDE AND 150 MG LEFT SIDE)
     Route: 058
     Dates: start: 20110316
  8. XOLAIR [Suspect]
     Active Substance: OMALIZUMAB
     Dosage: 300 MG (150MG RIGHT SIDE AND 150 MG LEFT SIDE)
     Route: 058
     Dates: start: 20110523
  9. XOLAIR [Suspect]
     Active Substance: OMALIZUMAB
     Dosage: 300 MG (150MG RIGHT SIDE AND 150 MG LEFT SIDE)
     Route: 058
     Dates: start: 20111031
  10. ADVAIR HFA [Concomitant]
     Active Substance: FLUTICASONE PROPIONATE\SALMETEROL XINAFOATE
     Indication: PRODUCT USED FOR UNKNOWN INDICATION
     Dosage: 2 DF (115-21MCG),  BID (INHALE 2 INHALATIONS TWICE DAILY) 10-12HRS.
     Route: 055
  11. XOLAIR [Suspect]
     Active Substance: OMALIZUMAB
     Dosage: 300 MG (150MG RIGHT SIDE AND 150 MG LEFT SIDE)
     Route: 058
     Dates: start: 20110815
  12. IPRATROPIUM BROMIDE. [Concomitant]
     Active Substance: IPRATROPIUM BROMIDE
     Indication: PRODUCT USED FOR UNKNOWN INDICATION
     Dosage: 1 EVERY 4-6HRS, 30 DAYS, 5 REFILLS, NEBULIZE 1 VIAL
     Route: 045
  13. ZITHROMAX [Concomitant]
     Active Substance: AZITHROMYCIN DIHYDRATE
     Dosage: 1 DF, 250 MG  (PILL FOR DAYS 2-10,  TAKE WITH FOOD)
     Route: 065
  14. CLARITIN [Concomitant]
     Active Substance: LORATADINE
     Indication: PRODUCT USED FOR UNKNOWN INDICATION
     Route: 065
  15. FLONASE [Concomitant]
     Active Substance: FLUTICASONE PROPIONATE
     Indication: PRODUCT USED FOR UNKNOWN INDICATION
     Dosage: 50 UG
     Route: 065
  16. SINGULAIR [Concomitant]
     Active Substance: MONTELUKAST SODIUM
     Indication: PRODUCT USED FOR UNKNOWN INDICATION
     Dosage: 10 MG, QD (ONCE A DAY, 90 DAYS, 1 REFILL, TAKE 1 TABLET AT BEDTIME OR DINNER (10 MG,1 IN 1 D)
     Route: 048

REACTIONS (21)
  - Rhinorrhoea [Unknown]
  - Arthralgia [Unknown]
  - Sinus headache [Unknown]
  - Sleep disorder [None]
  - Ocular hyperaemia [Unknown]
  - Pruritus [Unknown]
  - Eczema [Unknown]
  - Eye pruritus [Unknown]
  - Chest discomfort [Unknown]
  - Lymphadenopathy [Unknown]
  - Rash [Unknown]
  - Dyspnoea [Unknown]
  - Sneezing [Unknown]
  - Cough [Unknown]
  - Drug ineffective [None]
  - Dry skin [Unknown]
  - Nasal obstruction [Unknown]
  - Fatigue [Unknown]
  - Headache [Unknown]
  - Swelling [Unknown]
  - Upper-airway cough syndrome [Unknown]

NARRATIVE: CASE EVENT DATE: 20120222
